FAERS Safety Report 16174006 (Version 1)
Quarter: 2019Q2

REPORT INFORMATION
  Report Type: Spontaneous
  Country: US (occurrence: US)
  Receive Date: 20190306
  Receipt Date: 20190306
  Transmission Date: 20190711
  Serious: No
  Sender: FDA-Public Use
  Company Number: None

PATIENT
  Age: 0 Day
  Sex: Female

DRUGS (1)
  1. PHYTONADIONE INJ SYG [Suspect]
     Active Substance: PHYTONADIONE
     Route: 030

REACTIONS (4)
  - Jaundice neonatal [None]
  - Somnolence neonatal [None]
  - Hepatotoxicity [None]
  - Weight decrease neonatal [None]

NARRATIVE: CASE EVENT DATE: 20180730
